FAERS Safety Report 5450139-7 (Version None)
Quarter: 2007Q3

REPORT INFORMATION
  Report Type: 
  Country: None (occurrence: None)
  Receive Date: 20070912
  Receipt Date: 20070904
  Transmission Date: 20080115
  Serious: Yes (Other)
  Sender: FDA-Public Use
  Company Number: B0477309A

PATIENT
  Age: 67 Year
  Sex: Male
  Weight: 84 kg

DRUGS (9)
  1. REQUIP [Suspect]
     Indication: PARKINSON'S DISEASE
     Route: 048
     Dates: start: 20050310
  2. VENLAFAXINE HCL [Concomitant]
     Indication: DEPRESSION
     Dosage: 75MG TWICE PER DAY
     Route: 065
     Dates: start: 20051122
  3. CO-BENELDOPA [Concomitant]
     Indication: PARKINSON'S DISEASE
     Route: 065
     Dates: start: 20061103
  4. CO-CARELDOPA [Concomitant]
     Indication: PARKINSON'S DISEASE
     Route: 048
     Dates: start: 20040301, end: 20060201
  5. ENTACAPONE [Concomitant]
     Indication: PARKINSON'S DISEASE
     Route: 065
     Dates: start: 20051101, end: 20060201
  6. STALEVO 100 [Concomitant]
     Indication: PARKINSON'S DISEASE
     Route: 065
     Dates: start: 20060223, end: 20070526
  7. TOLTERODINE TARTRATE [Concomitant]
     Indication: PARKINSON'S DISEASE
     Dosage: 1MG TWICE PER DAY
     Route: 065
     Dates: start: 20040915, end: 20050317
  8. PERGOLIDE MESYLATE [Concomitant]
     Indication: PARKINSON'S DISEASE
     Route: 065
     Dates: start: 20011214, end: 20050207
  9. SINEMET [Concomitant]
     Indication: PARKINSON'S DISEASE
     Route: 065
     Dates: start: 20050310, end: 20061012

REACTIONS (3)
  - DEPRESSIVE SYMPTOM [None]
  - MASKED FACIES [None]
  - SUICIDAL IDEATION [None]
